FAERS Safety Report 6181477-0 (Version None)
Quarter: 2009Q2

REPORT INFORMATION
  Report Type: 
  Country: None (occurrence: None)
  Receive Date: 20090501
  Receipt Date: 20090415
  Transmission Date: 20091009
  Serious: Yes (Other)
  Sender: FDA-Public Use
  Company Number: PAR_02953_2009

PATIENT
  Sex: Male

DRUGS (18)
  1. IBUPROFEN [Suspect]
     Indication: DRUG USE FOR UNKNOWN INDICATION
     Dosage: (1800 MG)
     Dates: start: 20090211, end: 20090225
  2. IBUPROFEN [Suspect]
     Indication: DRUG USE FOR UNKNOWN INDICATION
     Dosage: (1200 MG)
     Dates: start: 20090209, end: 20090209
  3. RIVAROXABAN [Suspect]
     Indication: ANTICOAGULANT THERAPY
     Dosage: (10 MG)
     Dates: start: 20090210, end: 20090225
  4. RIVAROXABAN [Suspect]
     Indication: KNEE ARTHROPLASTY
     Dosage: (10 MG)
     Dates: start: 20090210, end: 20090225
  5. PROPOFOL [Concomitant]
  6. FENTANYL [Concomitant]
  7. CEFAZOLIN [Concomitant]
  8. AKRINOR [Concomitant]
  9. TUTOFUSIN [Concomitant]
  10. AMLODIPINE [Concomitant]
  11. DIOVAN HCT [Concomitant]
  12. SPASMO-MUCOSOLVAN [Concomitant]
  13. ATMADISC [Concomitant]
  14. NORMOGLAUCON /01482401/ [Concomitant]
  15. PANTOZOL /01263202/ [Concomitant]
  16. SPIRIVA [Concomitant]
  17. TRAMAL /00599202/ [Concomitant]
  18. RED BLOOD CELLS [Concomitant]

REACTIONS (5)
  - HAEMATOMA [None]
  - HAEMORRHAGE [None]
  - OEDEMA PERIPHERAL [None]
  - PAIN [None]
  - POST PROCEDURAL COMPLICATION [None]
